FAERS Safety Report 11718852 (Version 2)
Quarter: 2015Q4

REPORT INFORMATION
  Report Type: Spontaneous
  Country: US (occurrence: US)
  Receive Date: 20151110
  Receipt Date: 20151204
  Transmission Date: 20160304
  Serious: Yes (Other)
  Sender: FDA-Public Use
  Company Number: US-BAYER-2015-464095

PATIENT
  Age: 19 Year
  Sex: Female

DRUGS (1)
  1. MIRENA [Suspect]
     Active Substance: LEVONORGESTREL
     Indication: CONTRACEPTION
     Dosage: 20 MCG/24HR, CONT
     Route: 015
     Dates: start: 20150608, end: 20150909

REACTIONS (5)
  - Device expulsion [Recovered/Resolved]
  - Coital bleeding [None]
  - Genital haemorrhage [Recovered/Resolved]
  - Medical device discomfort [None]
  - Pelvic pain [Recovered/Resolved]

NARRATIVE: CASE EVENT DATE: 201509
